FAERS Safety Report 8646075 (Version 2)
Quarter: 2014Q1

REPORT INFORMATION
  Report Type: Spontaneous
  Country: US (occurrence: None)
  Receive Date: 20120323
  Receipt Date: 20130305
  Transmission Date: 20141002
  Serious: Yes (Other)
  Sender: FDA-Public Use
  Company Number: 163-21880-11101332

PATIENT
  Age: 61 Year
  Sex: Male

DRUGS (12)
  1. REVLIMID (LENALIDOMIDE) (CAPSULES) [Suspect]
     Indication: PLASMA CELL MYELOMA
     Dosage: 25 MG, QD X 21 DAYS EVERY 28
     Route: 048
     Dates: start: 20100703, end: 20111103
  2. DECADRON [Concomitant]
  3. ASPIRIN (ACETYLSALCYCLIC ACID) [Concomitant]
  4. NORCO (VICODIN) [Concomitant]
  5. PROTONIX [Concomitant]
  6. ZESTRIL [Concomitant]
  7. EFFIENT (PRASUGREL HYDROCHLORIDE) [Concomitant]
  8. ZOCOR [Concomitant]
  9. TENORMIN [Concomitant]
  10. NITROSTAT [Concomitant]
  11. QVAR [Concomitant]
  12. PROAIR (FLUTICASONE PROPIONATE) [Concomitant]

REACTIONS (2)
  - Creatinine renal clearance decreased [None]
  - Anaemia [None]
